FAERS Safety Report 5192726-X (Version None)
Quarter: 2006Q4

REPORT INFORMATION
  Report Type: 
  Country: None (occurrence: None)
  Receive Date: 20061228
  Receipt Date: 20061101
  Transmission Date: 20070319
  Serious: Yes (Other)
  Sender: FDA-Public Use
  Company Number: PHEH2006US13623

PATIENT
  Age: 66 Year
  Sex: Male

DRUGS (6)
  1. LAMISIL [Suspect]
     Indication: NAIL TINEA
     Dosage: 250 MG, QD
     Route: 048
     Dates: start: 20061001
  2. ZETIA [Concomitant]
  3. PRAVACHOL [Concomitant]
  4. ASPIRIN [Concomitant]
  5. TOPROL-XL [Concomitant]
  6. FISH OIL [Concomitant]

REACTIONS (6)
  - EOSINOPHIL COUNT DECREASED [None]
  - HAEMATOCRIT DECREASED [None]
  - HAEMOGLOBIN DECREASED [None]
  - HAEMOLYTIC ANAEMIA [None]
  - HAPTOGLOBIN DECREASED [None]
  - RETICULOCYTE COUNT INCREASED [None]
